FAERS Safety Report 11441516 (Version 3)
Quarter: 2015Q4

REPORT INFORMATION
  Report Type: Report from Study
  Country: US (occurrence: US)
  Receive Date: 20150901
  Receipt Date: 20151022
  Transmission Date: 20160304
  Serious: Yes (Hospitalization, Other)
  Sender: FDA-Public Use
  Company Number: US-GILEAD-2015-0169853

PATIENT
  Age: 52 Year
  Sex: Male

DRUGS (4)
  1. REMODULIN [Concomitant]
     Active Substance: TREPROSTINIL
     Route: 042
  2. AMBRISENTAN [Suspect]
     Active Substance: AMBRISENTAN
     Indication: HEPATIC CIRRHOSIS
  3. ADCIRCA [Concomitant]
     Active Substance: TADALAFIL
  4. AMBRISENTAN [Suspect]
     Active Substance: AMBRISENTAN
     Indication: PULMONARY HYPERTENSION
     Dosage: 10 MG, QD
     Route: 065
     Dates: start: 20130325

REACTIONS (1)
  - Device related infection [Unknown]
